FAERS Safety Report 4351114-6 (Version None)
Quarter: 2004Q2

REPORT INFORMATION
  Report Type: 
  Country: None (occurrence: None)
  Receive Date: 20040427
  Receipt Date: 20040414
  Transmission Date: 20050107
  Serious: Yes (Hospitalization)
  Sender: FDA-Public Use
  Company Number: S04-FRA-00781-01

PATIENT
  Age: 74 Year
  Sex: Female

DRUGS (5)
  1. SEROPRAM (CITALOPRAM HYDROBROMIDE) [Suspect]
     Indication: DEPRESSION
     Dosage: 20 MG QD PO
     Route: 048
     Dates: start: 20010101
  2. CLARITIN [Suspect]
     Dosage: 10 MG QD PO
     Route: 048
     Dates: start: 20031119
  3. LEXOMIL (BROMAZEPAM) [Suspect]
     Dosage: 6 MG TID PO
     Route: 048
     Dates: start: 20030924, end: 20031228
  4. INTERCRON (CROMOGLICATE SODIUM) [Concomitant]
  5. DIGOXIN [Concomitant]

REACTIONS (6)
  - BRADYPHRENIA [None]
  - DISORIENTATION [None]
  - DRUG INTERACTION [None]
  - FALL [None]
  - MALAISE [None]
  - SOMNOLENCE [None]
